FAERS Safety Report 6957666-1 (Version None)
Quarter: 2010Q3

REPORT INFORMATION
  Report Type: 
  Country: None (occurrence: None)
  Receive Date: 20100817
  Receipt Date: 20090915
  Transmission Date: 20110219
  Serious: Yes (Hospitalization)
  Sender: FDA-Public Use
  Company Number: 20097295

PATIENT
  Sex: Female

DRUGS (1)
  1. LIORESAL [Suspect]
     Indication: MUSCLE SPASTICITY
     Dosage: 175 MCG, DAILY, INTRATHECAL
     Route: 037

REACTIONS (3)
  - DRUG EFFECT DECREASED [None]
  - SOMNOLENCE [None]
  - THERAPY REGIMEN CHANGED [None]
